FAERS Safety Report 4919039-2 (Version None)
Quarter: 2006Q1

REPORT INFORMATION
  Report Type: 
  Country: None (occurrence: None)
  Receive Date: 20060216
  Receipt Date: 20060130
  Transmission Date: 20060701
  Serious: No
  Sender: FDA-Public Use
  Company Number: USA0511112791

PATIENT
  Sex: Female

DRUGS (1)
  1. CYMBALTA [Suspect]
     Dosage: 90 MG, DAILY (1/D)

REACTIONS (1)
  - ASPARTATE AMINOTRANSFERASE INCREASED [None]
